FAERS Safety Report 5089487-1 (Version None)
Quarter: 2006Q3

REPORT INFORMATION
  Report Type: 
  Country: None (occurrence: None)
  Receive Date: 20060727
  Receipt Date: 20060617
  Transmission Date: 20061208
  Serious: Yes (Other)
  Sender: FDA-Public Use
  Company Number: 2006078078

PATIENT
  Age: 52 Year
  Sex: Female
  Weight: 113.3993 kg

DRUGS (12)
  1. LYRICA [Suspect]
     Indication: NEURALGIA
     Dosage: 75 MG (75 MG, 1 IN 1 D)
     Route: 065
  2. NEURONTIN [Suspect]
     Indication: NEURALGIA
     Route: 065
     Dates: start: 20050201
  3. GLUCOPHAGE [Concomitant]
  4. LOTENSIN [Concomitant]
  5. SYNTHROID [Concomitant]
  6. ARTHROTEC [Concomitant]
  7. POLY-HISTINE (MEPYRAMINE MALEATE, OHENIRAMINE MALEATE, PHENYLTOLOXAMIN [Concomitant]
  8. FIORICET [Concomitant]
  9. LORTAB [Concomitant]
  10. HERBAL PREPARATION (HERBAL PREPARATION ) [Concomitant]
  11. STOOL SOFTENER (DOCUSATE SODIUM) [Concomitant]
  12. PRILOSEC [Concomitant]

REACTIONS (7)
  - DISTURBANCE IN ATTENTION [None]
  - FEELING ABNORMAL [None]
  - FEELING DRUNK [None]
  - IMPAIRED DRIVING ABILITY [None]
  - PAIN [None]
  - SOMNOLENCE [None]
  - VISION BLURRED [None]
